FAERS Safety Report 8347920-3 (Version None)
Quarter: 2012Q2

REPORT INFORMATION
  Report Type: 
  Country: None (occurrence: None)
  Receive Date: 20120509
  Receipt Date: 20120424
  Transmission Date: 20120825
  Serious: Yes (Hospitalization, Other)
  Sender: FDA-Public Use
  Company Number: US-WATSON-2012-07532

PATIENT
  Age: 64 Year
  Sex: Female

DRUGS (1)
  1. METRONIDAZOLE [Suspect]
     Indication: CLOSTRIDIUM DIFFICILE COLITIS
     Dosage: CUMMULATIVE DOSE OF 65 G, UNKNOWN
     Route: 065

REACTIONS (4)
  - DYSKINESIA [None]
  - TOXIC ENCEPHALOPATHY [None]
  - PARAESTHESIA [None]
  - DYSARTHRIA [None]
